FAERS Safety Report 6793219-6 (Version None)
Quarter: 2010Q2

REPORT INFORMATION
  Report Type: 
  Country: None (occurrence: None)
  Receive Date: 20100624
  Receipt Date: 20090918
  Transmission Date: 20101027
  Serious: Yes (Other)
  Sender: FDA-Public Use
  Company Number: US-MYLANLABS-2009S1014788

PATIENT
  Age: 85 Year
  Sex: Female
  Weight: 54 kg

DRUGS (9)
  1. CLOZAPINE [Suspect]
     Indication: DELUSION
     Route: 048
     Dates: start: 20090820, end: 20090826
  2. CLOZAPINE [Suspect]
     Indication: SCHIZOPHRENIA
     Route: 048
     Dates: start: 20090820, end: 20090826
  3. CLOZAPINE [Suspect]
     Indication: PSYCHOTIC DISORDER
     Route: 048
     Dates: start: 20090820, end: 20090826
  4. ASPIRIN [Concomitant]
  5. DOCUSATE [Concomitant]
  6. ZOCOR [Concomitant]
     Route: 048
  7. DONEPEZIL HCL [Concomitant]
     Route: 048
  8. HYDROXYZINE [Concomitant]
     Dosage: 25MG - 50MG EVERY 3 HOURS AS NEEDED FOR AGITATION
     Route: 048
  9. TRAZODONE HYDROCHLORIDE [Concomitant]
     Dosage: HS PRN
     Route: 048

REACTIONS (2)
  - GRANULOCYTOPENIA [None]
  - LEUKOPENIA [None]
